FAERS Safety Report 8910837 (Version 1)
Quarter: 2012Q4

REPORT INFORMATION
  Report Type: 
  Country: US (occurrence: US)
  Receive Date: 20121115
  Receipt Date: 20121115
  Transmission Date: 20130627
  Serious: Yes (Death, Life-Threatening, Hospitalization)
  Sender: FDA-Public Use
  Company Number: US-GILEAD-2012-0060370

PATIENT
  Age: 59 Year
  Sex: Female

DRUGS (13)
  1. LETAIRIS [Suspect]
     Indication: PULMONARY HYPERTENSION
     Dosage: 5 mg, UNK
     Route: 048
     Dates: start: 20120224
  2. LETAIRIS [Suspect]
     Indication: SARCOIDOSIS
  3. LETAIRIS [Suspect]
     Indication: CHRONIC OBSTRUCTIVE PULMONARY DISEASE
  4. ADVAIR [Concomitant]
     Indication: CHRONIC OBSTRUCTIVE PULMONARY DISEASE
     Dosage: UNK
     Dates: end: 20120906
  5. PREDNISONE [Concomitant]
     Indication: CHRONIC OBSTRUCTIVE PULMONARY DISEASE
     Dosage: UNK
     Dates: end: 20120906
  6. COUMADIN                           /00014802/ [Concomitant]
     Indication: PULMONARY ARTERIAL HYPERTENSION
     Dosage: UNK
     Dates: end: 20120906
  7. REMODULIN [Concomitant]
     Indication: PULMONARY ARTERIAL HYPERTENSION
     Dosage: UNK
     Dates: end: 20120906
  8. ALBUTEROL                          /00139501/ [Concomitant]
     Indication: CHRONIC OBSTRUCTIVE PULMONARY DISEASE
     Dosage: UNK
     Dates: end: 20120906
  9. SPIRIVA [Concomitant]
     Indication: CHRONIC OBSTRUCTIVE PULMONARY DISEASE
     Dosage: UNK
     Dates: end: 20120906
  10. LASIX                              /00032601/ [Concomitant]
     Indication: PULMONARY ARTERIAL HYPERTENSION
     Dosage: UNK
     Dates: end: 20120906
  11. LIPITOR [Concomitant]
     Indication: LIPIDS INCREASED
     Dosage: UNK
     Dates: end: 20120906
  12. AMBIEN [Concomitant]
     Indication: INSOMNIA
     Dosage: UNK
     Dates: end: 20120906
  13. LISINOPRIL [Concomitant]
     Dosage: UNK
     Dates: end: 20120906

REACTIONS (3)
  - Acute respiratory failure [Fatal]
  - Pulseless electrical activity [Fatal]
  - Dyspnoea [Unknown]
